FAERS Safety Report 21522093 (Version 1)
Quarter: 2022Q4

REPORT INFORMATION
  Report Type: Spontaneous
  Country: US (occurrence: None)
  Receive Date: 20221027
  Receipt Date: 20221027
  Transmission Date: 20230113
  Serious: Yes (Hospitalization)
  Sender: FDA-Public Use
  Company Number: None

PATIENT
  Age: 76 Year
  Sex: Male

DRUGS (1)
  1. HYDROCHLOROTHIAZIDE [Suspect]
     Active Substance: HYDROCHLOROTHIAZIDE
     Indication: Hypertension
     Dosage: 1 TAB EVERY DAY PO?
     Route: 048
     Dates: start: 20220503, end: 20220630

REACTIONS (7)
  - Hyponatraemia [None]
  - Hypovolaemia [None]
  - Hypophagia [None]
  - Fall [None]
  - Hyperglycaemia [None]
  - Blood potassium decreased [None]
  - Blood chloride decreased [None]

NARRATIVE: CASE EVENT DATE: 20220630
